FAERS Safety Report 12452527 (Version 1)
Quarter: 2016Q2

REPORT INFORMATION
  Report Type: Report from Study
  Country: US (occurrence: US)
  Receive Date: 20160609
  Receipt Date: 20160609
  Transmission Date: 20160815
  Serious: Yes (Other)
  Sender: FDA-Public Use
  Company Number: US-BAYER-2016-107731

PATIENT
  Age: 50 Year
  Sex: Female

DRUGS (8)
  1. VESICARE [Concomitant]
     Active Substance: SOLIFENACIN SUCCINATE
  2. IBUPROFEN. [Concomitant]
     Active Substance: IBUPROFEN
  3. DOXYCYCLINE. [Concomitant]
     Active Substance: DOXYCYCLINE
  4. CLARITIN-D 12 HOUR [Concomitant]
     Active Substance: LORATADINE\PSEUDOEPHEDRINE SULFATE
  5. VITAMIN D3 [Concomitant]
     Active Substance: CHOLECALCIFEROL
  6. LYRICA [Concomitant]
     Active Substance: PREGABALIN
  7. BABY ASPIRIN [Concomitant]
     Active Substance: ASPIRIN
  8. BETASERON [Suspect]
     Active Substance: INTERFERON BETA-1B
     Indication: RELAPSING-REMITTING MULTIPLE SCLEROSIS
     Dosage: 8 MIU, QOD
     Route: 058
     Dates: start: 20140712

REACTIONS (4)
  - Epistaxis [Recovered/Resolved]
  - Sinus congestion [Recovered/Resolved]
  - Paranasal sinus hypersecretion [Recovered/Resolved]
  - Mouth haemorrhage [Recovered/Resolved]

NARRATIVE: CASE EVENT DATE: 20160529
